FAERS Safety Report 10641822 (Version 2)
Quarter: 2015Q4

REPORT INFORMATION
  Report Type: Spontaneous
  Country: US (occurrence: US)
  Receive Date: 20141209
  Receipt Date: 20151205
  Transmission Date: 20160304
  Serious: Yes (Other)
  Sender: FDA-Public Use
  Company Number: US-BAUSCH-BL-2014-007380

PATIENT
  Age: 64 Year
  Sex: Female

DRUGS (4)
  1. XENAZINE [Suspect]
     Active Substance: TETRABENAZINE
     Route: 048
     Dates: start: 20110418
  2. XENAZINE [Suspect]
     Active Substance: TETRABENAZINE
     Indication: DYSKINESIA
     Route: 048
     Dates: start: 200909
  3. XENAZINE [Suspect]
     Active Substance: TETRABENAZINE
     Route: 048
  4. XENAZINE [Suspect]
     Active Substance: TETRABENAZINE
     Route: 048

REACTIONS (6)
  - Pain in jaw [Unknown]
  - Muscle twitching [Recovering/Resolving]
  - Condition aggravated [Recovering/Resolving]
  - Suicidal ideation [Recovering/Resolving]
  - Dyskinesia [Unknown]
  - Off label use [Not Recovered/Not Resolved]

NARRATIVE: CASE EVENT DATE: 200909
